FAERS Safety Report 18882266 (Version 1)
Quarter: 2021Q1

REPORT INFORMATION
  Report Type: Spontaneous
  Country: FR (occurrence: FR)
  Receive Date: 20210212
  Receipt Date: 20210212
  Transmission Date: 20210420
  Serious: Yes (Hospitalization)
  Sender: FDA-Public Use
  Company Number: FR-ADIENNEP-2021AD000023

PATIENT
  Age: 52 Year
  Sex: Female

DRUGS (1)
  1. TEPADINA [Suspect]
     Active Substance: THIOTEPA
     Route: 041
     Dates: start: 20201122, end: 20201123

REACTIONS (1)
  - Toxic erythema of chemotherapy [Recovered/Resolved]

NARRATIVE: CASE EVENT DATE: 20201130
